FAERS Safety Report 25811278 (Version 2)
Quarter: 2025Q4

REPORT INFORMATION
  Report Type: Spontaneous
  Country: US (occurrence: US)
  Receive Date: 20250917
  Receipt Date: 20251224
  Transmission Date: 20260117
  Serious: Yes (Other)
  Sender: SANOFI AVENTIS
  Company Number: US-SA-2025SA275566

PATIENT
  Age: 36 Year
  Sex: Male

DRUGS (12)
  1. ELOCTATE [Suspect]
     Active Substance: EFMOROCTOCOG ALFA
     Indication: Factor VIII deficiency
     Dosage: 4000 UNITS (3600-4414) SLOW IV PUSH EVERY 4 DAYS,
     Route: 042
     Dates: start: 202212
  2. ELOCTATE [Suspect]
     Active Substance: EFMOROCTOCOG ALFA
     Indication: Factor VIII deficiency
     Dosage: 4000 UNITS (3600-4414) SLOW IV PUSH EVERY 4 DAYS,
     Route: 042
     Dates: start: 202212
  3. ELOCTATE [Suspect]
     Active Substance: EFMOROCTOCOG ALFA
     Dosage: 2925 UNITS (2633-3217) EVERY 24-48 HOURS AS NEEDED FOR MINOR/MODERATE BLEED
     Route: 042
     Dates: start: 202212
  4. ELOCTATE [Suspect]
     Active Substance: EFMOROCTOCOG ALFA
     Dosage: 2925 UNITS (2633-3217) EVERY 24-48 HOURS AS NEEDED FOR MINOR/MODERATE BLEED
     Route: 042
     Dates: start: 202212
  5. ELOCTATE [Suspect]
     Active Substance: EFMOROCTOCOG ALFA
     Dosage: 4875 UNITS (4388-5362) EVERY 12-24 HOURS AS NEEDED FOR MAJOR BLEED (THEN GO TO EMERGENCY)
     Route: 042
     Dates: start: 202212
  6. ELOCTATE [Suspect]
     Active Substance: EFMOROCTOCOG ALFA
     Dosage: 4875 UNITS (4388-5362) EVERY 12-24 HOURS AS NEEDED FOR MAJOR BLEED (THEN GO TO EMERGENCY)
     Route: 042
     Dates: start: 202212
  7. ELOCTATE [Suspect]
     Active Substance: EFMOROCTOCOG ALFA
     Dosage: 4000 U
     Route: 042
  8. ELOCTATE [Suspect]
     Active Substance: EFMOROCTOCOG ALFA
     Dosage: 4000 U
     Route: 042
  9. ELOCTATE [Suspect]
     Active Substance: EFMOROCTOCOG ALFA
     Dosage: 750 U
     Route: 042
  10. ELOCTATE [Suspect]
     Active Substance: EFMOROCTOCOG ALFA
     Dosage: 750 U
     Route: 042
  11. ELOCTATE [Suspect]
     Active Substance: EFMOROCTOCOG ALFA
     Dosage: 2000 U
     Route: 042
  12. ELOCTATE [Suspect]
     Active Substance: EFMOROCTOCOG ALFA
     Dosage: 2000 U
     Route: 042

REACTIONS (2)
  - Haemarthrosis [Recovering/Resolving]
  - Incorrect dose administered [Unknown]

NARRATIVE: CASE EVENT DATE: 20250725
